FAERS Safety Report 8137429-4 (Version None)
Quarter: 2012Q1

REPORT INFORMATION
  Report Type: 
  Country: None (occurrence: None)
  Receive Date: 20120103
  Receipt Date: 20111005
  Transmission Date: 20120608
  Serious: No
  Sender: FDA-Public Use
  Company Number: AE-2011-001358

PATIENT
  Age: 56 Year
  Sex: Male
  Weight: 81.6475 kg

DRUGS (9)
  1. ASPIRIN [Concomitant]
  2. CELEBREX [Concomitant]
  3. INCIVEK [Suspect]
     Dosage: 1125 MG (375 MG, 1 IN 8 HR), ORAL
     Route: 048
     Dates: start: 20110812
  4. LISINOPRIL [Concomitant]
  5. TRAMADOL HCL [Concomitant]
  6. PEGASYS [Concomitant]
  7. FLOMAX [Concomitant]
  8. ADVAIR HFA [Concomitant]
  9. RIBAVIRIN [Concomitant]

REACTIONS (4)
  - DIARRHOEA [None]
  - HAEMATOCHEZIA [None]
  - ANORECTAL DISCOMFORT [None]
  - HAEMORRHOIDS [None]
